FAERS Safety Report 6107131-9 (Version None)
Quarter: 2009Q1

REPORT INFORMATION
  Report Type: 
  Country: None (occurrence: None)
  Receive Date: 20090309
  Receipt Date: 20090223
  Transmission Date: 20090719
  Serious: Yes (Hospitalization)
  Sender: FDA-Public Use
  Company Number: PHHY2009FR06784

PATIENT
  Age: 81 Year
  Sex: Female

DRUGS (7)
  1. TAREG [Suspect]
     Dosage: 160 MG, QD
     Route: 048
  2. LOXEN LP [Suspect]
     Dosage: 50 MG, QD
     Route: 048
  3. ZOLPIDEM [Suspect]
     Route: 048
  4. DIAMICRON [Suspect]
     Dosage: 60 MG DAILY
     Route: 048
  5. TANAKAN [Concomitant]
  6. ACETAMINOPHEN [Concomitant]
  7. ACTONEL [Concomitant]

REACTIONS (3)
  - FALL [None]
  - HUMERUS FRACTURE [None]
  - IMMOBILISATION PROLONGED [None]
